FAERS Safety Report 6073580-0 (Version None)
Quarter: 2009Q1

REPORT INFORMATION
  Report Type: 
  Country: None (occurrence: None)
  Receive Date: 20090211
  Receipt Date: 20090206
  Transmission Date: 20090719
  Serious: Yes (Hospitalization, Congenital Anomaly, Other)
  Sender: FDA-Public Use
  Company Number: US-PFIZER INC-2008049851

PATIENT
  Sex: Female

DRUGS (1)
  1. ZOLOFT [Suspect]
     Route: 064
     Dates: start: 20041101

REACTIONS (14)
  - ABDOMINAL PAIN [None]
  - CLEFT LIP AND PALATE [None]
  - CONSTIPATION [None]
  - CRANIOSYNOSTOSIS [None]
  - DRUG EXPOSURE DURING PREGNANCY [None]
  - EAR INFECTION [None]
  - FEEDING DISORDER NEONATAL [None]
  - FINE MOTOR DELAY [None]
  - GASTROOESOPHAGEAL REFLUX DISEASE [None]
  - MILD MENTAL RETARDATION [None]
  - MIXED RECEPTIVE-EXPRESSIVE LANGUAGE DISORDER [None]
  - OXYGEN SATURATION DECREASED [None]
  - PERINATAL BRAIN DAMAGE [None]
  - WEIGHT GAIN POOR [None]
